FAERS Safety Report 5052894-7 (Version None)
Quarter: 2006Q3

REPORT INFORMATION
  Report Type: 
  Country: None (occurrence: None)
  Receive Date: 20060712
  Receipt Date: 20060630
  Transmission Date: 20061208
  Serious: Yes (Other)
  Sender: FDA-Public Use
  Company Number: 2006-07-0274

PATIENT
  Sex: Female

DRUGS (2)
  1. REBETOL [Suspect]
     Dosage: ORAL
     Route: 048
  2. INTRON A [Suspect]

REACTIONS (3)
  - COLON CANCER [None]
  - INJURY [None]
  - PHARMACEUTICAL PRODUCT COMPLAINT [None]
